FAERS Safety Report 9331134 (Version 1)
Quarter: 2013Q2

REPORT INFORMATION
  Report Type: Spontaneous
  Country: IT (occurrence: None)
  Receive Date: 20130531
  Receipt Date: 20130531
  Transmission Date: 20140414
  Serious: Yes (Other)
  Sender: FDA-Public Use
  Company Number: AUR-APL-2013-04314

PATIENT
  Age: 19 Year
  Sex: Female

DRUGS (3)
  1. SERTRALINE (SERTRALINE) (SERTRALINE) [Suspect]
     Indication: DEPRESSION
     Route: 048
     Dates: start: 20130303, end: 20130303
  2. DELORAZEPAM (DELORAZEPAM) [Suspect]
     Indication: DEPRESSION
     Route: 048
     Dates: start: 20130303, end: 20130303
  3. BROMAZEPAM (BROMAZEPAM) [Suspect]
     Indication: DEPRESSION
     Route: 048
     Dates: start: 20130303, end: 20130303

REACTIONS (3)
  - Suicide attempt [None]
  - Prothrombin time abnormal [None]
  - Drug abuse [None]
